FAERS Safety Report 4456119-2 (Version None)
Quarter: 2004Q3

REPORT INFORMATION
  Report Type: 
  Country: None (occurrence: None)
  Receive Date: 20040920
  Receipt Date: 20040907
  Transmission Date: 20050211
  Serious: Yes (Other)
  Sender: FDA-Public Use
  Company Number: 2004051848

PATIENT
  Age: 45 Year
  Sex: Female

DRUGS (30)
  1. FLUCONAZOLE [Suspect]
     Indication: ILL-DEFINED DISORDER
  2. MELPHALAN (MELPHALAN) [Suspect]
     Indication: STEM CELL TRANSPLANT
     Dosage: 70 MG/M2
  3. FLUDARABINE PHOSPHATE [Concomitant]
  4. FAMOTIDINE [Concomitant]
  5. BACTRIM [Concomitant]
  6. LEVOFLOXACIN [Concomitant]
  7. POLYMYXIN B SULFATE (POLYMYXIN B SULFATE) [Concomitant]
  8. HEPARIN-FRATION, SODIUM SALT (HEPARIN-FRACTION, SODIUM SALT) [Concomitant]
  9. DOPAMINE HCL [Concomitant]
  10. FUROSEMIDE [Concomitant]
  11. STRONG HOKUPHAGEN (AMINOACETIC ACID, CYSTEINE, GLYCYRRHIZIC ACID, AMMO [Concomitant]
  12. GRANISETRON HYDROCHLORIDE (GRANISETRON HYDROCHLORIDE) [Concomitant]
  13. ALLOPURINOL [Concomitant]
  14. ACYCLOVIR [Concomitant]
  15. HAEMOLYSED CATTLE BLOOD EXTRACT (HAEMOLYSED CATTLE BLOOD EXTRACT) [Concomitant]
  16. MENATETRENONE (MENATETRENONE) [Concomitant]
  17. TRANDOLAPRIL (TRANDOLAPRIL) [Concomitant]
  18. CYCLOSPORINE [Concomitant]
  19. POTASSIUM CANRENOATE (POTASSIUM CANRENOATE) [Concomitant]
  20. METHOTREXATE [Concomitant]
  21. CEFOZOPRAN HYDROCHLORIDE (CEFOZOPRAN HYDROCHLORIDE) [Concomitant]
  22. FILGRASTIM (FILGRASTIM) [Concomitant]
  23. ALBUMIN (HUMAN) [Concomitant]
  24. OMEPRAZOLE SODIUM (OMEPRAZOLE SODIUM) [Concomitant]
  25. PREDNISOLONE [Concomitant]
  26. URSODEOXYCHOLIC ACID (URSODEOXYCHOLIC ACID) [Concomitant]
  27. ETHYL ICOSAPENTANTE (ETHYL ICOSAPENTATE) [Concomitant]
  28. MEROPENEM TRIHYDRATE (MEROPENEM TRIHYDRATE) [Concomitant]
  29. RANITIDINE [Concomitant]
  30. DRUGS FOR TREATMENT OF PEPTIC ULCER (DRUGS FOR TREATMENT OF PEPTIC ULC [Concomitant]

REACTIONS (13)
  - ASCITES [None]
  - C-REACTIVE PROTEIN INCREASED [None]
  - CARDIAC FAILURE [None]
  - CONDITION AGGRAVATED [None]
  - HEPATIC FAILURE [None]
  - MUCOSAL INFLAMMATION [None]
  - NAUSEA [None]
  - RASH [None]
  - RENAL FAILURE CHRONIC [None]
  - STEM CELL TRANSPLANT [None]
  - VENOOCCLUSIVE LIVER DISEASE [None]
  - VOMITING [None]
  - WEIGHT INCREASED [None]
